FAERS Safety Report 16090684 (Version 1)
Quarter: 2019Q1

REPORT INFORMATION
  Report Type: Spontaneous
  Country: US (occurrence: US)
  Receive Date: 20190319
  Receipt Date: 20190319
  Transmission Date: 20190418
  Serious: No
  Sender: FDA-Public Use
  Company Number: US-PFIZER INC-2019107908

PATIENT
  Age: 53 Year
  Sex: Female
  Weight: 48.99 kg

DRUGS (3)
  1. CHANTIX [Suspect]
     Active Substance: VARENICLINE TARTRATE
     Indication: SMOKING CESSATION THERAPY
     Dosage: 0.5 MG, UNK
     Dates: start: 2018, end: 2018
  2. CHANTIX [Suspect]
     Active Substance: VARENICLINE TARTRATE
     Dosage: 1 MG, UNK (SPLITTING THE 1MG TABLETS IN HALF)
  3. CHANTIX [Suspect]
     Active Substance: VARENICLINE TARTRATE
     Dosage: 1 MG, UNK (1MG TABLET IN MORNING AND ONE IN THE EVENING)
     Dates: start: 2018, end: 2018

REACTIONS (4)
  - Drug ineffective [Unknown]
  - Gastric disorder [Unknown]
  - Intentional product misuse [Unknown]
  - Malaise [Unknown]
